FAERS Safety Report 22103611 (Version 1)
Quarter: 2023Q1

REPORT INFORMATION
  Report Type: Spontaneous
  Country: CN (occurrence: CN)
  Receive Date: 20230316
  Receipt Date: 20230316
  Transmission Date: 20230418
  Serious: Yes (Other)
  Sender: FDA-Public Use
  Company Number: CN-PFIZER INC-PV202300049401

PATIENT
  Age: 7 Year
  Sex: Female
  Weight: 31 kg

DRUGS (1)
  1. METHOTREXATE SODIUM [Suspect]
     Active Substance: METHOTREXATE SODIUM
     Indication: Chemotherapy
     Dosage: 5.25 G, 1X/DAY
     Route: 041
     Dates: start: 20230224, end: 20230224

REACTIONS (3)
  - Oral mucosal roughening [Recovering/Resolving]
  - Oral disorder [Recovering/Resolving]
  - Oral mucosal erythema [Recovering/Resolving]

NARRATIVE: CASE EVENT DATE: 20230227
